FAERS Safety Report 6914778-6 (Version None)
Quarter: 2010Q3

REPORT INFORMATION
  Report Type: 
  Country: None (occurrence: None)
  Receive Date: 20100809
  Receipt Date: 20100804
  Transmission Date: 20110219
  Serious: Yes (Hospitalization)
  Sender: FDA-Public Use
  Company Number: US-GILEAD-2010-0030857

PATIENT
  Sex: Male
  Weight: 107.14 kg

DRUGS (16)
  1. LETAIRIS [Suspect]
     Indication: PULMONARY ARTERIAL HYPERTENSION
     Route: 048
     Dates: start: 20100615
  2. COUMADIN [Concomitant]
  3. PLAVIX [Concomitant]
  4. ASPIRIN [Concomitant]
  5. ZESTRIL [Concomitant]
  6. CARDIZEM [Concomitant]
  7. ZOCOR [Concomitant]
  8. LUMIGAN [Concomitant]
  9. CLINDAMYCIN [Concomitant]
  10. VENTOLIN [Concomitant]
  11. AVODART [Concomitant]
  12. SYMBICORT [Concomitant]
  13. ALLOPURINOL [Concomitant]
  14. FINACEA [Concomitant]
  15. ACETAMINOPHEN [Concomitant]
  16. CITRACAL +D [Concomitant]

REACTIONS (1)
  - THROMBOSIS [None]
